FAERS Safety Report 5636843-6 (Version None)
Quarter: 2008Q1

REPORT INFORMATION
  Report Type: 
  Country: None (occurrence: None)
  Receive Date: 20080225
  Receipt Date: 20080220
  Transmission Date: 20080703
  Serious: Yes (Hospitalization)
  Sender: FDA-Public Use
  Company Number: DE-BRISTOL-MYERS SQUIBB COMPANY-14069090

PATIENT
  Age: 54 Year
  Sex: Female
  Weight: 68 kg

DRUGS (5)
  1. ORENCIA [Suspect]
     Indication: POLYARTHRITIS
     Route: 042
     Dates: start: 20071018
  2. LANTAREL [Concomitant]
     Indication: POLYARTHRITIS
     Route: 058
     Dates: start: 20071001
  3. PREDNISOLONE [Concomitant]
     Indication: POLYARTHRITIS
     Route: 048
     Dates: start: 20071101
  4. CALCIMAGON-D3 [Concomitant]
     Indication: POLYARTHRITIS
     Dates: start: 20071001
  5. PHENPROCOUMON [Concomitant]

REACTIONS (2)
  - ARTERY DISSECTION [None]
  - CEREBROVASCULAR ACCIDENT [None]
